FAERS Safety Report 5852079-8 (Version None)
Quarter: 2008Q3

REPORT INFORMATION
  Report Type: 
  Country: None (occurrence: None)
  Receive Date: 20080819
  Receipt Date: 20080819
  Transmission Date: 20090109
  Serious: Yes (Other)
  Sender: FDA-Public Use
  Company Number: None

PATIENT
  Sex: Female
  Weight: 49.4421 kg

DRUGS (2)
  1. LISINOPRIL [Suspect]
     Indication: HYPERTENSION
     Dosage: 10MG 1 PO QD 047
     Route: 048
     Dates: start: 20080623
  2. LISINOPRIL [Suspect]
     Indication: HYPERTENSION
     Dosage: 10MG 1 PO QD 047
     Route: 048
     Dates: start: 20080818

REACTIONS (1)
  - COUGH [None]
